FAERS Safety Report 5017442-6 (Version None)
Quarter: 2006Q2

REPORT INFORMATION
  Report Type: 
  Country: None (occurrence: None)
  Receive Date: 20060525
  Receipt Date: 20060517
  Transmission Date: 20061013
  Serious: Yes (Other)
  Sender: FDA-Public Use
  Company Number: 200612087BCC

PATIENT
  Age: 73 Year
  Sex: Female
  Weight: 77.1115 kg

DRUGS (12)
  1. ALEVE [Suspect]
     Indication: PAIN
     Dosage: 440 MG, OM; ORAL, 220 MG, NI, ORAL
     Route: 048
     Dates: start: 20060401
  2. ALEVE [Suspect]
     Indication: PAIN
     Dosage: 440 MG, OM; ORAL, 220 MG, NI, ORAL
     Route: 048
     Dates: start: 20060517
  3. COUMADIN [Concomitant]
  4. TRENTAL [Concomitant]
  5. NORVASC [Concomitant]
  6. AVAPRO [Concomitant]
  7. DIGOXIN [Concomitant]
  8. GLUCOSAMINE [Concomitant]
  9. MIRALAX [Concomitant]
  10. CENTRUM SILVER [Concomitant]
  11. AMARYL [Concomitant]
  12. GLUCOPHAGE [Concomitant]

REACTIONS (1)
  - VAGINAL HAEMORRHAGE [None]
